FAERS Safety Report 4382069-6 (Version None)
Quarter: 2004Q2

REPORT INFORMATION
  Report Type: 
  Country: None (occurrence: None)
  Receive Date: 20040615
  Receipt Date: 20040601
  Transmission Date: 20050107
  Serious: Yes (Death)
  Sender: FDA-Public Use
  Company Number: 194971

PATIENT
  Age: 67 Year
  Sex: Female

DRUGS (6)
  1. AVONEX [Suspect]
     Indication: MULTIPLE SCLEROSIS
     Dosage: 30 MCG QW IM
     Route: 030
     Dates: start: 20010804
  2. PREDNISONE [Concomitant]
  3. THALIDOMIDE [Concomitant]
  4. DITROPAN [Concomitant]
  5. COUMADIN [Concomitant]
  6. ZOFRAN [Concomitant]

REACTIONS (2)
  - PULMONARY FUNCTION TEST DECREASED [None]
  - REFUSAL OF TREATMENT BY PATIENT [None]
